FAERS Safety Report 4921518-9 (Version None)
Quarter: 2006Q1

REPORT INFORMATION
  Report Type: 
  Country: None (occurrence: None)
  Receive Date: 20060224
  Receipt Date: 20060212
  Transmission Date: 20060701
  Serious: Yes (Hospitalization)
  Sender: FDA-Public Use
  Company Number: PHEH2006US02058

PATIENT
  Age: 19 Year
  Sex: Female
  Weight: 58.956 kg

DRUGS (3)
  1. ELIDEL [Suspect]
     Indication: ECZEMA
     Dosage: UNK, QD
     Route: 061
     Dates: start: 20040617, end: 20050105
  2. ZOLOFT [Concomitant]
     Dosage: 100 MG, QD
     Route: 048
     Dates: start: 20040301
  3. ADDERALL 10 [Concomitant]
     Dosage: 15 MG, QD
     Route: 048

REACTIONS (4)
  - DRUG INEFFECTIVE [None]
  - HODGKIN'S DISEASE STAGE II [None]
  - PRURITUS [None]
  - RASH [None]
